FAERS Safety Report 4348704-3 (Version None)
Quarter: 2004Q2

REPORT INFORMATION
  Report Type: 
  Country: None (occurrence: None)
  Receive Date: 20040423
  Receipt Date: 20040413
  Transmission Date: 20050107
  Serious: Yes (Hospitalization)
  Sender: FDA-Public Use
  Company Number: US013007

PATIENT
  Age: 77 Year
  Sex: Male
  Weight: 99.7913 kg

DRUGS (8)
  1. PROVIGIL [Suspect]
     Indication: SLEEP APNOEA SYNDROME
     Dosage: 400 MG QD ORAL
     Route: 048
     Dates: start: 20021001, end: 20040410
  2. COZAAR [Concomitant]
  3. AMIODARONE HCL [Concomitant]
  4. AMARYL [Concomitant]
  5. FLUCROCORTISONE [Concomitant]
  6. ASPIRIN [Concomitant]
  7. NOVOLIN [Concomitant]
  8. ADVAIR DISKUS 100/50 [Concomitant]

REACTIONS (2)
  - BLOOD PRESSURE DECREASED [None]
  - SYNCOPE [None]
